FAERS Safety Report 6562966-3 (Version None)
Quarter: 2010Q1

REPORT INFORMATION
  Report Type: 
  Country: None (occurrence: None)
  Receive Date: 20100130
  Receipt Date: 20091203
  Transmission Date: 20100710
  Serious: No
  Sender: FDA-Public Use
  Company Number: US-ABBOTT-09P-163-0612077-00

PATIENT
  Sex: Female
  Weight: 69.462 kg

DRUGS (3)
  1. HUMIRA [Suspect]
     Indication: CROHN'S DISEASE
     Dates: start: 20091001
  2. IRON [Concomitant]
     Indication: CROHN'S DISEASE
     Route: 048
  3. YAZ [Concomitant]
     Indication: CONTRACEPTION
     Dosage: DAILY
     Route: 048

REACTIONS (3)
  - DIARRHOEA [None]
  - DRUG INEFFECTIVE [None]
  - FEELING HOT [None]
